FAERS Safety Report 5991446-9 (Version None)
Quarter: 2008Q4

REPORT INFORMATION
  Report Type: 
  Country: None (occurrence: None)
  Receive Date: 20081202
  Receipt Date: 20080114
  Transmission Date: 20090506
  Serious: Yes (Disabling)
  Sender: FDA-Public Use
  Company Number: WAES 0606USA05284

PATIENT
  Age: 53 Year
  Sex: Female
  Weight: 65.7716 kg

DRUGS (6)
  1. FOSAMAX [Suspect]
     Indication: OSTEOPENIA
     Dosage: 5 MG/DAILY/PO ; 35 MG/WKY/PO
     Route: 048
     Dates: start: 19991219, end: 20001001
  2. FOSAMAX [Suspect]
     Indication: OSTEOPOROSIS
     Dosage: 5 MG/DAILY/PO ; 35 MG/WKY/PO
     Route: 048
     Dates: start: 19991219, end: 20001001
  3. FOSAMAX [Suspect]
     Indication: OSTEOPENIA
     Dosage: 5 MG/DAILY/PO ; 35 MG/WKY/PO
     Route: 048
     Dates: start: 20011212, end: 20051221
  4. FOSAMAX [Suspect]
     Indication: OSTEOPOROSIS
     Dosage: 5 MG/DAILY/PO ; 35 MG/WKY/PO
     Route: 048
     Dates: start: 20011212, end: 20051221
  5. PREMPRO [Concomitant]
  6. CALCIUM (UNSPECIFIED) [Concomitant]

REACTIONS (17)
  - ABSCESS ORAL [None]
  - BACK INJURY [None]
  - BREATH ODOUR [None]
  - CONCUSSION [None]
  - DIVERTICULUM [None]
  - DYSPLASTIC NAEVUS SYNDROME [None]
  - HAEMORRHOIDS [None]
  - INJURY [None]
  - NAUSEA [None]
  - NECK INJURY [None]
  - OROPHARYNGEAL BLISTERING [None]
  - OSTEOARTHRITIS [None]
  - OSTEONECROSIS [None]
  - PARAESTHESIA ORAL [None]
  - ROAD TRAFFIC ACCIDENT [None]
  - SKIN ODOUR ABNORMAL [None]
  - TENOSYNOVITIS STENOSANS [None]
